FAERS Safety Report 23643763 (Version 1)
Quarter: 2024Q1

REPORT INFORMATION
  Report Type: Spontaneous
  Country: IT (occurrence: IT)
  Receive Date: 20240318
  Receipt Date: 20240318
  Transmission Date: 20240409
  Serious: Yes (Other)
  Sender: FDA-Public Use
  Company Number: IT-009507513-2403ITA005558

PATIENT
  Age: 59 Year
  Sex: Female

DRUGS (1)
  1. PEMBROLIZUMAB [Suspect]
     Active Substance: PEMBROLIZUMAB
     Indication: Non-small cell lung cancer
     Dosage: 2 MILLIGRAM/KILOGRAM, EVERY 3 WEEKS

REACTIONS (1)
  - Rheumatoid arthritis [Unknown]
